FAERS Safety Report 9392147 (Version 1)
Quarter: 2013Q3

REPORT INFORMATION
  Report Type: Report from Study
  Country: FR (occurrence: FR)
  Receive Date: 20130709
  Receipt Date: 20130709
  Transmission Date: 20140515
  Serious: Yes (Hospitalization)
  Sender: FDA-Public Use
  Company Number: FR-ROCHE-1190045

PATIENT
  Age: 80 Year
  Sex: Female
  Weight: 41 kg

DRUGS (20)
  1. TOCILIZUMAB [Suspect]
     Indication: RHEUMATOID ARTHRITIS
     Route: 041
     Dates: start: 20110706
  2. TOCILIZUMAB [Suspect]
     Route: 065
     Dates: start: 20120326
  3. TOCILIZUMAB [Suspect]
     Route: 065
     Dates: start: 20120423
  4. TOCILIZUMAB [Suspect]
     Route: 065
     Dates: start: 20120521
  5. TOCILIZUMAB [Suspect]
     Route: 065
     Dates: start: 20120719
  6. TOCILIZUMAB [Suspect]
     Route: 065
     Dates: start: 20120816
  7. TOCILIZUMAB [Suspect]
     Route: 065
     Dates: start: 20121010
  8. TOCILIZUMAB [Suspect]
     Route: 065
     Dates: start: 20121105
  9. TOCILIZUMAB [Suspect]
     Route: 065
     Dates: start: 20121203
  10. METHOTREXATE [Suspect]
     Indication: RHEUMATOID ARTHRITIS
     Route: 065
  11. METHOTREXATE [Suspect]
     Route: 065
  12. METHOTREXATE [Suspect]
     Dosage: 10 MG PER WEEK INSTEAD OF 2.5 MG/WEEK.
     Route: 065
     Dates: start: 20120228
  13. CORTANCYL [Concomitant]
     Indication: RHEUMATOID ARTHRITIS
     Route: 065
  14. INFLIXIMAB [Concomitant]
     Route: 065
     Dates: start: 20021112, end: 20110418
  15. KARDEGIC [Concomitant]
  16. FOSAMAX [Concomitant]
     Dosage: 1 DF WEEK
     Route: 065
  17. NEBIVOLOL [Concomitant]
  18. SPECIAFOLDINE [Concomitant]
     Route: 065
  19. ZYRTEC [Concomitant]
     Route: 065
  20. FORLAX (FRANCE) [Concomitant]
     Dosage: DAILY
     Route: 065

REACTIONS (3)
  - Foot operation [Recovered/Resolved]
  - Skin ulcer [Recovered/Resolved]
  - Pruritus [Recovered/Resolved]
